FAERS Safety Report 22525780 (Version 1)
Quarter: 2023Q2

REPORT INFORMATION
  Report Type: Spontaneous
  Country: KR (occurrence: KR)
  Receive Date: 20230606
  Receipt Date: 20230606
  Transmission Date: 20230721
  Serious: Yes (Hospitalization, Other)
  Sender: FDA-Public Use
  Company Number: KR-ORGANON-O2305KOR003226

PATIENT
  Age: 85 Year
  Sex: Male
  Weight: 77.5 kg

DRUGS (10)
  1. COZAAR [Suspect]
     Active Substance: LOSARTAN POTASSIUM
     Dosage: 0.5 FORMULATION, 1 DAY; UNCOATED TABLET
     Route: 048
     Dates: start: 20100422
  2. NAPROXEN [Suspect]
     Active Substance: NAPROXEN
     Indication: Back pain
     Dosage: 1 FORMULATION, 0.5 DAY; UNCOATED TABLET
     Route: 048
     Dates: start: 20200302, end: 20200302
  3. NEFOPAM HYDROCHLORIDE [Suspect]
     Active Substance: NEFOPAM HYDROCHLORIDE
     Indication: Back pain
     Dosage: 20 MILLIGRAM, 0.33 DAY; ROUTE REPORTED AS VEIN
     Route: 042
     Dates: start: 20200301, end: 20200301
  4. KETOROLAC TROMETHAMINE [Suspect]
     Active Substance: KETOROLAC TROMETHAMINE
     Indication: Back pain
     Dosage: 1 DOSAGE FORM, 0.5 DAY; FORMULATION: SOLUTION INJECTION; ROUTE VEIN
     Route: 042
     Dates: start: 20200301, end: 20200301
  5. ASPIRIN [Interacting]
     Active Substance: ASPIRIN
     Dosage: 1 DOSAGE FORM, 1 DAY; FORMULATION: SUSTAINED-RELEASE FILM-COATED TABLETS
     Route: 048
     Dates: start: 20100429, end: 20200309
  6. PITAVASTATIN CALCIUM [Concomitant]
     Active Substance: PITAVASTATIN CALCIUM
     Dosage: 1 DOSAGE FORM, 1 DAY
     Route: 048
     Dates: start: 20161205
  7. TAMSULOSIN HYDROCHLORIDE [Concomitant]
     Active Substance: TAMSULOSIN HYDROCHLORIDE
     Dosage: 1 DOSAGE FORM, 1 DAY; FORMULATION: SUSTAINED-RELEASE FILM-COATED TABLETS
     Route: 048
     Dates: start: 20200229
  8. LANSOPRAZOLE [Concomitant]
     Active Substance: LANSOPRAZOLE
     Dosage: 1 DOSAGE FORM, 1 DAY; GRANULES
     Route: 048
     Dates: start: 20200309, end: 20200510
  9. TRIMEBUTINE MALEATE [Concomitant]
     Active Substance: TRIMEBUTINE MALEATE
     Dosage: 1 DOSAGE FORM, 0.33 DAY; FORMULATION: UNCOATED TABLET
     Route: 048
     Dates: start: 20200308
  10. CIPROFLOXACIN [Concomitant]
     Active Substance: CIPROFLOXACIN
     Dosage: 200 MILLIGRAM, 1 DAY; FORMULATION: SOLUTION INJECTION; ROUTE: VEIN
     Route: 042
     Dates: start: 20200304, end: 20200311

REACTIONS (3)
  - Duodenal ulcer haemorrhage [Recovered/Resolved]
  - Anaemia [Recovering/Resolving]
  - Melaena [Recovering/Resolving]

NARRATIVE: CASE EVENT DATE: 20200306
